FAERS Safety Report 9410834 (Version 3)
Quarter: 2013Q3

REPORT INFORMATION
  Report Type: Spontaneous
  Country: JP (occurrence: JP)
  Receive Date: 20130719
  Receipt Date: 20130808
  Transmission Date: 20140515
  Serious: Yes (Hospitalization, Other)
  Sender: FDA-Public Use
  Company Number: JP-009507513-1307JPN010952

PATIENT
  Age: 93 Year
  Sex: Female
  Weight: 45 kg

DRUGS (5)
  1. PREMINENT TABLETS [Suspect]
     Indication: HYPERTENSION
     Dosage: 1 DOSAGE FORM, 1 DAY
     Route: 048
     Dates: start: 20090114, end: 20130717
  2. AMLODIN (AMLODIPINE BESYLATE) [Concomitant]
     Dosage: TOTAL DAILY DOSE 2.5 MG, DIVIDED DOSE FREQUENCY UNKNOWN
     Route: 048
     Dates: start: 20100208
  3. GASTER D [Concomitant]
     Indication: NAUSEA
     Dosage: 20 MG, TWICE A DAY
     Route: 048
     Dates: start: 20130712, end: 20130716
  4. PRIMPERAN [Concomitant]
     Indication: NAUSEA
     Dosage: 5 MG, THREE TIMES A DAY
     Route: 048
     Dates: start: 20130712, end: 20130716
  5. LENDORMIN [Concomitant]
     Dosage: TOTAL DAILY DOSE 0.25MG, DIVIDED DOSE FREQUENCY UNKNOWN
     Route: 048
     Dates: start: 20070801

REACTIONS (5)
  - Rhabdomyolysis [Recovered/Resolved]
  - Dehydration [Unknown]
  - Hyponatraemia [Recovered/Resolved]
  - Diarrhoea [Unknown]
  - Nausea [Unknown]
